FAERS Safety Report 5518179-7 (Version None)
Quarter: 2007Q4

REPORT INFORMATION
  Report Type: 
  Country: None (occurrence: None)
  Receive Date: 20071113
  Receipt Date: 20071109
  Transmission Date: 20080405
  Serious: Yes (Hospitalization)
  Sender: FDA-Public Use
  Company Number: GRT-2007-13399

PATIENT
  Age: 54 Year
  Sex: Male
  Weight: 132 kg

DRUGS (13)
  1. LIDOCAINE [Suspect]
     Indication: NEURALGIA
  2. ISOPTIN [Concomitant]
  3. HELICID [Concomitant]
  4. LOZAP [Concomitant]
  5. CYMBALTA [Concomitant]
  6. TRITACE [Concomitant]
  7. AFONILUM [Concomitant]
  8. SULODEXIDE [Concomitant]
  9. WARFARIN SODIUM [Concomitant]
  10. SIMVASTATIN [Concomitant]
  11. NOVORAPID [Concomitant]
  12. INSULATARD [Concomitant]
  13. HYLIODINE [Concomitant]

REACTIONS (1)
  - ERYSIPELAS [None]
